FAERS Safety Report 13550438 (Version 1)
Quarter: 2017Q2

REPORT INFORMATION
  Report Type: Spontaneous
  Country: CA (occurrence: CA)
  Receive Date: 20170516
  Receipt Date: 20170516
  Transmission Date: 20170830
  Serious: No
  Sender: FDA-Public Use
  Company Number: CA-PERNIX THERAPEUTICS-2016PT000252

PATIENT

DRUGS (9)
  1. FOSAMAC [Concomitant]
     Active Substance: ALENDRONATE SODIUM
     Indication: BONE DISORDER
     Dosage: UNK
  2. SILENOR [Suspect]
     Active Substance: DOXEPIN HYDROCHLORIDE
     Dosage: 3 MG, AT 4 AM
     Route: 048
     Dates: start: 20161201
  3. VITAMIN D                          /00107901/ [Concomitant]
     Active Substance: ERGOCALCIFEROL
  4. VALTREX [Concomitant]
     Active Substance: VALACYCLOVIR HYDROCHLORIDE
  5. SILENOR [Suspect]
     Active Substance: DOXEPIN HYDROCHLORIDE
     Dosage: 6 MG, AT NIGHT
     Route: 048
     Dates: start: 20161201
  6. DIOVAN [Concomitant]
     Active Substance: VALSARTAN
     Indication: HYPERTENSION
     Dosage: 25/160 MG
  7. SIMVASTATIN. [Concomitant]
     Active Substance: SIMVASTATIN
     Indication: BLOOD CHOLESTEROL ABNORMAL
     Dosage: UNK
  8. SILENOR [Suspect]
     Active Substance: DOXEPIN HYDROCHLORIDE
     Indication: INSOMNIA
     Dosage: 3 MG, AT NIGHT
     Route: 048
     Dates: start: 20161130, end: 20161130
  9. CALCIUM CITRATE [Concomitant]
     Active Substance: CALCIUM CITRATE

REACTIONS (4)
  - Hyperhidrosis [Unknown]
  - Drug ineffective [Unknown]
  - Somnolence [Unknown]
  - Insomnia [Unknown]

NARRATIVE: CASE EVENT DATE: 20161130
